FAERS Safety Report 13397665 (Version 4)
Quarter: 2017Q2

REPORT INFORMATION
  Report Type: Spontaneous
  Country: JP (occurrence: JP)
  Receive Date: 20170403
  Receipt Date: 20170625
  Transmission Date: 20170830
  Serious: Yes (Death, Other)
  Sender: FDA-Public Use
  Company Number: JP-MYLANLABS-2017M1020312

PATIENT

DRUGS (2)
  1. VANCOMYCIN [Suspect]
     Active Substance: VANCOMYCIN
     Indication: PNEUMONIA
     Dosage: UNK
     Route: 041
     Dates: start: 20160831
  2. VENOGLOBULIN IH [Suspect]
     Active Substance: HUMAN IMMUNOGLOBULIN G
     Indication: PRODUCT USED FOR UNKNOWN INDICATION
     Dosage: UNK
     Route: 065
     Dates: start: 20160902

REACTIONS (10)
  - Respiratory failure [Fatal]
  - Condition aggravated [Unknown]
  - Skin discolouration [Unknown]
  - Vomiting [Unknown]
  - Pneumonia staphylococcal [Fatal]
  - C-reactive protein increased [Unknown]
  - Diarrhoea [Unknown]
  - Platelet count decreased [Unknown]
  - Cyanosis [Unknown]
  - Blood creatine phosphokinase increased [Unknown]
